FAERS Safety Report 20683599 (Version 2)
Quarter: 2022Q2

REPORT INFORMATION
  Report Type: Spontaneous
  Country: JP (occurrence: JP)
  Receive Date: 20220407
  Receipt Date: 20220418
  Transmission Date: 20220721
  Serious: Yes (Hospitalization)
  Sender: FDA-Public Use
  Company Number: JP-TEVA-2022-JP-001423J

PATIENT
  Age: 81 Year
  Sex: Male

DRUGS (12)
  1. DUTASTERIDE [Suspect]
     Active Substance: DUTASTERIDE
     Indication: Product used for unknown indication
     Route: 048
     Dates: end: 202203
  2. TRAMCET [Concomitant]
     Active Substance: ACETAMINOPHEN\TRAMADOL
     Route: 048
  3. LOXOPROFEN SODIUM [Concomitant]
     Active Substance: LOXOPROFEN SODIUM
     Route: 048
  4. METHYLCOBALAMIN [Concomitant]
     Active Substance: METHYLCOBALAMIN
     Route: 048
  5. OPALMON [Concomitant]
     Active Substance: LIMAPROST
     Route: 048
  6. MIRABEGRON [Concomitant]
     Active Substance: MIRABEGRON
     Route: 048
  7. SILODOSIN [Concomitant]
     Active Substance: SILODOSIN
     Route: 048
  8. TRICHLORMETHIAZIDE [Concomitant]
     Active Substance: TRICHLORMETHIAZIDE
     Route: 048
  9. AMLODIPINE BESYLATE\CANDESARTAN CILEXETIL [Concomitant]
     Active Substance: AMLODIPINE BESYLATE\CANDESARTAN CILEXETIL
     Route: 048
  10. REBAMIPIDE [Concomitant]
     Active Substance: REBAMIPIDE
     Route: 048
  11. LANSOPRAZOLE [Concomitant]
     Active Substance: LANSOPRAZOLE
     Route: 048
  12. PREGABALIN [Concomitant]
     Active Substance: PREGABALIN
     Route: 048

REACTIONS (1)
  - Drug-induced liver injury [Recovered/Resolved]

NARRATIVE: CASE EVENT DATE: 20220329
